FAERS Safety Report 24317526 (Version 2)
Quarter: 2024Q3

REPORT INFORMATION
  Report Type: Spontaneous
  Country: US (occurrence: US)
  Receive Date: 20240913
  Receipt Date: 20240930
  Transmission Date: 20241016
  Serious: No
  Sender: MYLAN
  Company Number: US-MYLANLABS-2024M1082774

PATIENT
  Sex: Male

DRUGS (1)
  1. FENTANYL TRANSDERMAL SYSTEM [Suspect]
     Active Substance: FENTANYL
     Indication: Pain
     Dosage: 37.5 MICROGRAM, QH (PER HOUR)
     Route: 062

REACTIONS (3)
  - Withdrawal syndrome [Unknown]
  - Drug effect less than expected [Unknown]
  - Product quality issue [Unknown]
